FAERS Safety Report 22598147 (Version 1)
Quarter: 2023Q2

REPORT INFORMATION
  Report Type: Spontaneous
  Country: US (occurrence: None)
  Receive Date: 20230614
  Receipt Date: 20230614
  Transmission Date: 20230721
  Serious: No
  Sender: FDA-Public Use
  Company Number: US-MDD US Operations-MDD202206-001704

PATIENT
  Age: 66 Year
  Sex: Female
  Weight: 79.3 kg

DRUGS (4)
  1. APOKYN [Suspect]
     Active Substance: APOMORPHINE HYDROCHLORIDE
     Indication: Dyskinesia
     Dosage: NOT PROVIDED
     Dates: start: 201503
  2. APOKYN [Suspect]
     Active Substance: APOMORPHINE HYDROCHLORIDE
     Dosage: NOT PROVIDED
  3. ZONEGRAN [Concomitant]
     Active Substance: ZONISAMIDE
     Indication: Parkinson^s disease
     Dosage: NOT PROVIDED
  4. QUETIAPINE [Concomitant]
     Active Substance: QUETIAPINE
     Indication: Dementia
     Dosage: 75 MG

REACTIONS (6)
  - Blood pressure fluctuation [Recovered/Resolved]
  - Illusion [Unknown]
  - Yawning [Recovered/Resolved]
  - Nausea [Recovered/Resolved]
  - Rhinorrhoea [Recovered/Resolved]
  - Contusion [Recovered/Resolved]
